FAERS Safety Report 5929217-1 (Version None)
Quarter: 2008Q4

REPORT INFORMATION
  Report Type: 
  Country: None (occurrence: None)
  Receive Date: 20081024
  Receipt Date: 20081020
  Transmission Date: 20090506
  Serious: Yes (Hospitalization)
  Sender: FDA-Public Use
  Company Number: PH-BRISTOL-MYERS SQUIBB COMPANY-14379945

PATIENT
  Age: 40 Year
  Sex: Male

DRUGS (1)
  1. BARACLUDE [Suspect]
     Indication: HEPATITIS B
     Dosage: THERAPY:STOPPED ON 17OCT08,REINTRODUCED ON 19OCT08,AND STOPPED.
     Route: 048
     Dates: start: 20081010, end: 20081001

REACTIONS (5)
  - DEHYDRATION [None]
  - DUODENAL STENOSIS [None]
  - HYPOKALAEMIA [None]
  - HYPONATRAEMIA [None]
  - VOMITING [None]
